FAERS Safety Report 9819517 (Version 4)
Quarter: 2014Q1

REPORT INFORMATION
  Report Type: Spontaneous
  Country: JP (occurrence: JP)
  Receive Date: 20140115
  Receipt Date: 20140207
  Transmission Date: 20141002
  Serious: Yes (Hospitalization, Other)
  Sender: FDA-Public Use
  Company Number: JP-ASTRAZENECA-2014SE01712

PATIENT
  Age: 27018 Day
  Sex: Male

DRUGS (5)
  1. NEXIUM [Suspect]
     Indication: MELAENA
     Route: 048
     Dates: start: 20131119, end: 20131209
  2. ADONA [Concomitant]
     Indication: MELAENA
     Route: 048
     Dates: start: 20131119, end: 20131209
  3. TRANSAMIN [Concomitant]
     Indication: MELAENA
     Route: 048
     Dates: start: 20131119, end: 20131209
  4. REBAMIPIDE [Concomitant]
     Indication: MELAENA
     Route: 048
     Dates: start: 20131119, end: 20131209
  5. FERO-GRADUMET [Concomitant]
     Indication: IRON DEFICIENCY ANAEMIA
     Route: 048
     Dates: start: 20131119, end: 20131209

REACTIONS (2)
  - Rhabdomyolysis [Recovering/Resolving]
  - Volvulus [Unknown]
